FAERS Safety Report 5210681-0 (Version None)
Quarter: 2007Q1

REPORT INFORMATION
  Report Type: 
  Country: None (occurrence: None)
  Receive Date: 20070117
  Receipt Date: 20070111
  Transmission Date: 20070707
  Serious: Yes (Other)
  Sender: FDA-Public Use
  Company Number: CN-GLAXOSMITHKLINE-B0450001A

PATIENT
  Age: 5 Year
  Sex: Male

DRUGS (4)
  1. SERETIDE [Suspect]
     Indication: ALLERGIC COUGH
     Route: 055
     Dates: start: 20060924
  2. ALBUTEROL SULFATE [Concomitant]
     Indication: DRUG USE FOR UNKNOWN INDICATION
     Dosage: 2MG TWICE PER DAY
     Route: 065
     Dates: start: 20061002, end: 20061005
  3. LORATADINE [Concomitant]
     Indication: DRUG USE FOR UNKNOWN INDICATION
     Route: 065
     Dates: start: 20061002, end: 20061005
  4. TRADITIONAL CHINESE MEDICINE [Concomitant]
     Indication: DRUG USE FOR UNKNOWN INDICATION
     Route: 065
     Dates: start: 20061002, end: 20061005

REACTIONS (2)
  - DYSGRAPHIA [None]
  - TREMOR [None]
